FAERS Safety Report 8127166-4 (Version None)
Quarter: 2012Q1

REPORT INFORMATION
  Report Type: 
  Country: None (occurrence: None)
  Receive Date: 20120210
  Receipt Date: 20120207
  Transmission Date: 20120608
  Serious: Yes (Other)
  Sender: FDA-Public Use
  Company Number: US-PFIZER INC-2012033650

PATIENT
  Sex: Female

DRUGS (3)
  1. ATORVASTATIN CALCIUM [Suspect]
     Dosage: UNK
  2. LIPITOR [Suspect]
     Dosage: UNK
  3. LOSARTAN POTASSIUM [Suspect]
     Dosage: 50 MG, UNK

REACTIONS (4)
  - HYPOAESTHESIA [None]
  - PARAESTHESIA [None]
  - MYALGIA [None]
  - OSTEOARTHRITIS [None]
